FAERS Safety Report 16894952 (Version 1)
Quarter: 2019Q4

REPORT INFORMATION
  Report Type: Spontaneous
  Country: US (occurrence: US)
  Receive Date: 20191008
  Receipt Date: 20191008
  Transmission Date: 20200122
  Serious: No
  Sender: FDA-Public Use
  Company Number: US-INDIVIOR US-INDV-115008-2018

PATIENT
  Sex: Male

DRUGS (3)
  1. SUBOXONE [Suspect]
     Active Substance: BUPRENORPHINE HYDROCHLORIDE\NALOXONE HYDROCHLORIDE
     Dosage: UNK
     Route: 065
     Dates: start: 2018, end: 2018
  2. VYVANSE [Concomitant]
     Active Substance: LISDEXAMFETAMINE DIMESYLATE
     Indication: ATTENTION DEFICIT/HYPERACTIVITY DISORDER
     Dosage: UNK
     Route: 065
  3. SUBOXONE [Suspect]
     Active Substance: BUPRENORPHINE HYDROCHLORIDE\NALOXONE HYDROCHLORIDE
     Indication: DRUG DEPENDENCE
     Dosage: TAKE 1/2 STRIP IN MORNING AND 1/2 STRIP AT NIGHT
     Route: 065
     Dates: start: 2018, end: 2018

REACTIONS (10)
  - Adverse event [Unknown]
  - Drug withdrawal syndrome [Recovered/Resolved]
  - Renal pain [Unknown]
  - Vomiting [Unknown]
  - Inappropriate schedule of product administration [Recovered/Resolved]
  - Wrong technique in product usage process [Recovered/Resolved]
  - Therapy cessation [Recovered/Resolved]
  - Nausea [Unknown]
  - Nephrolithiasis [Recovered/Resolved]
  - Crying [Unknown]

NARRATIVE: CASE EVENT DATE: 2018
